FAERS Safety Report 24722238 (Version 1)
Quarter: 2024Q4

REPORT INFORMATION
  Report Type: Spontaneous
  Country: JP (occurrence: JP)
  Receive Date: 20241211
  Receipt Date: 20241211
  Transmission Date: 20250114
  Serious: Yes (Hospitalization, Other)
  Sender: NOVARTIS
  Company Number: JP-SANDOZ-SDZ2024JP100071

PATIENT
  Age: 68 Year
  Sex: Female
  Weight: 46 kg

DRUGS (2)
  1. CYCLOSPORINE [Suspect]
     Active Substance: CYCLOSPORINE
     Indication: Pemphigus
     Dosage: 100 MG, QD, (CAPSULE)
     Route: 048
     Dates: start: 20240629, end: 20241015
  2. PREDONINE [Concomitant]
     Active Substance: PREDNISOLONE
     Indication: Pemphigus
     Dosage: UNK
     Route: 048
     Dates: start: 20240629, end: 20241115

REACTIONS (1)
  - Leukoencephalopathy [Recovering/Resolving]

NARRATIVE: CASE EVENT DATE: 20240925
